FAERS Safety Report 5705072-X (Version None)
Quarter: 2008Q2

REPORT INFORMATION
  Report Type: 
  Country: None (occurrence: None)
  Receive Date: 20080410
  Receipt Date: 20080327
  Transmission Date: 20081010
  Serious: Yes (Hospitalization)
  Sender: FDA-Public Use
  Company Number: 232933J08USA

PATIENT
  Age: 67 Year
  Sex: Female
  Weight: 58.9676 kg

DRUGS (1)
  1. REBIF [Suspect]
     Indication: MULTIPLE SCLEROSIS
     Dates: start: 20040101

REACTIONS (18)
  - ASTHENIA [None]
  - CHEST DISCOMFORT [None]
  - CHILLS [None]
  - DRY SKIN [None]
  - FALL [None]
  - FATIGUE [None]
  - FLUSHING [None]
  - HUNGER [None]
  - INJECTION SITE ERYTHEMA [None]
  - MUSCULOSKELETAL DISORDER [None]
  - NERVE COMPRESSION [None]
  - OESOPHAGEAL SPASM [None]
  - PRURITUS [None]
  - SLEEP DISORDER [None]
  - STOMACH DISCOMFORT [None]
  - THIRST [None]
  - TOOTH FRACTURE [None]
  - TOOTH LOSS [None]
